FAERS Safety Report 6883406-0 (Version None)
Quarter: 2010Q3

REPORT INFORMATION
  Report Type: 
  Country: None (occurrence: None)
  Receive Date: 20100729
  Receipt Date: 20100716
  Transmission Date: 20110219
  Serious: Yes (Hospitalization)
  Sender: FDA-Public Use
  Company Number: FR-ELI_LILLY_AND_COMPANY-FR201005005340

PATIENT
  Sex: Female
  Weight: 55 kg

DRUGS (2)
  1. OPTRUMA [Suspect]
     Indication: OSTEOPOROSIS
     Dosage: 1 D/F, DAILY (1/D)
     Route: 048
     Dates: start: 20020727, end: 20100409
  2. OROCAL D(3) [Concomitant]

REACTIONS (1)
  - CEREBRAL ISCHAEMIA [None]
